FAERS Safety Report 17729164 (Version 2)
Quarter: 2020Q2

REPORT INFORMATION
  Report Type: Spontaneous
  Country: US (occurrence: US)
  Receive Date: 20200430
  Receipt Date: 20200521
  Transmission Date: 20200714
  Serious: No
  Sender: FDA-Public Use
  Company Number: US-TRIS PHARMA, INC.-20US008928

PATIENT

DRUGS (3)
  1. QUILLIVANT XR [Suspect]
     Active Substance: METHYLPHENIDATE HYDROCHLORIDE
     Dosage: 6 MILLILITER, QD
     Route: 048
     Dates: start: 20200401, end: 202004
  2. QUILLIVANT XR [Suspect]
     Active Substance: METHYLPHENIDATE HYDROCHLORIDE
     Dosage: 6 MILLILITER, QD
     Route: 048
     Dates: start: 2015
  3. QUILLIVANT XR [Suspect]
     Active Substance: METHYLPHENIDATE HYDROCHLORIDE
     Indication: ATTENTION DEFICIT HYPERACTIVITY DISORDER
     Dosage: 6 MILLILITER, QD
     Route: 048

REACTIONS (4)
  - Liquid product physical issue [Unknown]
  - Drug ineffective [Unknown]
  - Product taste abnormal [Unknown]
  - Product colour issue [Unknown]

NARRATIVE: CASE EVENT DATE: 202004
